FAERS Safety Report 7005427-X (Version None)
Quarter: 2010Q3

REPORT INFORMATION
  Report Type: 
  Country: None (occurrence: None)
  Receive Date: 20100921
  Receipt Date: 20100913
  Transmission Date: 20110219
  Serious: Yes (Other)
  Sender: FDA-Public Use
  Company Number: JP-ROCHE-722472

PATIENT
  Sex: Female
  Weight: 39 kg

DRUGS (12)
  1. AVASTIN [Suspect]
     Indication: COLON CANCER RECURRENT
     Route: 042
     Dates: start: 20091222, end: 20100802
  2. KYTRIL [Suspect]
     Dosage: NOTE: DOSAGE IS UNCERTAIN
     Route: 065
     Dates: start: 20100802
  3. ELPLAT [Concomitant]
     Route: 041
     Dates: start: 20090519, end: 20100705
  4. FLUOROURACIL [Concomitant]
     Dosage: INTRAVENOUS BOLUS
     Route: 041
     Dates: start: 20090519, end: 20100705
  5. FLUOROURACIL [Concomitant]
     Dosage: INTRAVENOUS DRIP
     Route: 041
     Dates: start: 20090519, end: 20100705
  6. LEUCOVORIN CALCIUM [Concomitant]
     Dosage: DOSAGE IS UNCERTAIN.
     Route: 041
     Dates: start: 20090519, end: 20100705
  7. LEUCON [Concomitant]
     Route: 048
     Dates: start: 20090602
  8. DAI-KENCHU-TO [Concomitant]
     Route: 048
     Dates: start: 20090602
  9. GASMOTIN [Concomitant]
     Route: 048
     Dates: start: 20090602
  10. MUCOSTA [Concomitant]
     Route: 048
     Dates: start: 20090602
  11. METHYCOBAL [Concomitant]
     Route: 048
     Dates: start: 20091027
  12. PROTECADIN [Concomitant]
     Route: 048
     Dates: start: 20100202

REACTIONS (1)
  - ANAPHYLACTIC SHOCK [None]
